FAERS Safety Report 15119494 (Version 4)
Quarter: 2019Q1

REPORT INFORMATION
  Report Type: Spontaneous
  Country: US (occurrence: US)
  Receive Date: 20180709
  Receipt Date: 20190204
  Transmission Date: 20190417
  Serious: No
  Sender: FDA-Public Use
  Company Number: US-PFIZER INC-2018211098

PATIENT
  Age: 13 Year
  Sex: Female
  Weight: 43.9 kg

DRUGS (4)
  1. VYVANSE [Concomitant]
     Active Substance: LISDEXAMFETAMINE DIMESYLATE
     Indication: ATTENTION DEFICIT/HYPERACTIVITY DISORDER
     Dosage: 30 MG, 1X/DAY
     Route: 048
  2. GENOTROPIN [Suspect]
     Active Substance: SOMATROPIN
     Indication: GROWTH HORMONE DEFICIENCY
     Dosage: 1.4 MG, DAILY (1.4 MG INJECTION DAILY)
     Route: 058
     Dates: start: 201706
  3. GENOTROPIN [Suspect]
     Active Substance: SOMATROPIN
     Dosage: UNK
     Dates: start: 201801
  4. GENOTROPIN [Suspect]
     Active Substance: SOMATROPIN
     Dosage: 1.4 MG, DAILY
     Dates: start: 20180215

REACTIONS (11)
  - Device issue [Recovered/Resolved]
  - Lymphocyte count decreased [Unknown]
  - Insulin-like growth factor increased [Unknown]
  - Mean cell haemoglobin decreased [Unknown]
  - Glycosylated haemoglobin increased [Unknown]
  - Haemoglobin increased [Unknown]
  - Product dose omission [Recovered/Resolved]
  - Blood glucose increased [Unknown]
  - Eosinophil count increased [Unknown]
  - Mean cell volume abnormal [Unknown]
  - Blood calcium increased [Unknown]

NARRATIVE: CASE EVENT DATE: 20180420
